FAERS Safety Report 8795466 (Version 3)
Quarter: 2015Q2

REPORT INFORMATION
  Report Type: Report from Study
  Country: US (occurrence: US)
  Receive Date: 20120917
  Receipt Date: 20150403
  Transmission Date: 20150821
  Serious: Yes (Death, Other)
  Sender: FDA-Public Use
  Company Number: US-ROCHE-1129291

PATIENT
  Sex: Male

DRUGS (25)
  1. XELODA [Suspect]
     Active Substance: CAPECITABINE
     Indication: PRODUCT USED FOR UNKNOWN INDICATION
     Route: 065
     Dates: start: 200703, end: 200707
  2. ERBITUX [Concomitant]
     Active Substance: CETUXIMAB
     Route: 065
  3. DURAGESIC [Concomitant]
     Active Substance: FENTANYL
     Route: 062
  4. FOLIC ACID. [Concomitant]
     Active Substance: FOLIC ACID
     Route: 065
  5. ARANESP [Concomitant]
     Active Substance: DARBEPOETIN ALFA
  6. OXALIPLATIN. [Concomitant]
     Active Substance: OXALIPLATIN
  7. LOMOTIL (UNITED STATES) [Concomitant]
     Dosage: AS PER NEEDED.
     Route: 065
  8. COMPAZINE [Concomitant]
     Active Substance: PROCHLORPERAZINE MALEATE
     Route: 065
  9. IMODIUM [Concomitant]
     Active Substance: LOPERAMIDE HYDROCHLORIDE
     Dosage: AS PER NEEDED.
     Route: 065
  10. NEURONTIN [Concomitant]
     Active Substance: GABAPENTIN
     Route: 065
  11. PHAZYME [Concomitant]
     Active Substance: DIMETHICONE 410
  12. PAREGORIC [Concomitant]
     Active Substance: MORPHINE
     Dosage: 2 TEASPOON
     Route: 065
  13. DECADRON [Concomitant]
     Active Substance: DEXAMETHASONE
     Route: 048
  14. ZOFRAN [Concomitant]
     Active Substance: ONDANSETRON HYDROCHLORIDE
     Dosage: AS PER NEEDED.
     Route: 065
  15. AVASTIN [Suspect]
     Active Substance: BEVACIZUMAB
     Indication: METASTASES TO LIVER
     Route: 042
     Dates: start: 20081031, end: 20081201
  16. PREVACID [Concomitant]
     Active Substance: LANSOPRAZOLE
     Route: 065
  17. AVASTIN [Suspect]
     Active Substance: BEVACIZUMAB
     Indication: COLON CANCER
     Route: 042
     Dates: start: 20071031, end: 20071212
  18. ALPRAZOLAM. [Concomitant]
     Active Substance: ALPRAZOLAM
     Route: 065
  19. FLOMAX (UNITED STATES) [Concomitant]
     Route: 048
  20. MAGNESIUM OXIDE. [Concomitant]
     Active Substance: MAGNESIUM OXIDE
     Route: 065
  21. PERIACTIN [Concomitant]
     Active Substance: CYPROHEPTADINE HYDROCHLORIDE
     Route: 065
  22. IRINOTECAN [Suspect]
     Active Substance: IRINOTECAN
     Indication: PRODUCT USED FOR UNKNOWN INDICATION
     Route: 065
  23. SAL-TROPINE [Concomitant]
     Dosage: AS PER NEEDED.
     Route: 065
  24. VECTIBIX [Concomitant]
     Active Substance: PANITUMUMAB
  25. BENADRYL [Concomitant]
     Active Substance: DIPHENHYDRAMINE HYDROCHLORIDE
     Route: 042

REACTIONS (14)
  - Small intestinal obstruction [Unknown]
  - Pain [Recovered/Resolved]
  - Depressed mood [Unknown]
  - Death [Fatal]
  - Diarrhoea [Recovered/Resolved]
  - Asthenia [Unknown]
  - Disease progression [Unknown]
  - Decreased appetite [Unknown]
  - Hypovolaemia [Unknown]
  - Nausea [Unknown]
  - Body temperature increased [Unknown]
  - Skin fissures [Unknown]
  - Insomnia [Unknown]
  - Metastases to liver [Unknown]
